FAERS Safety Report 7757854-0 (Version None)
Quarter: 2011Q3

REPORT INFORMATION
  Report Type: 
  Country: None (occurrence: None)
  Receive Date: 20110918
  Receipt Date: 20110906
  Transmission Date: 20111222
  Serious: Yes (Other)
  Sender: FDA-Public Use
  Company Number: US-BRISTOL-MYERS SQUIBB COMPANY-16058208

PATIENT
  Age: 39 Year
  Sex: Male

DRUGS (1)
  1. CARMUSTINE [Suspect]
     Indication: MALIGNANT GLIOMA
     Dosage: INTRACAROTID INFUSION

REACTIONS (3)
  - OPTIC ISCHAEMIC NEUROPATHY [None]
  - PAPILLOEDEMA [None]
  - VISUAL FIELD DEFECT [None]
